FAERS Safety Report 8375731-1 (Version None)
Quarter: 2012Q2

REPORT INFORMATION
  Report Type: 
  Country: None (occurrence: None)
  Receive Date: 20120517
  Receipt Date: 20120517
  Transmission Date: 20120825
  Serious: Yes (Hospitalization)
  Sender: FDA-Public Use
  Company Number: None

PATIENT
  Age: 30 Year
  Sex: Male
  Weight: 102 kg

DRUGS (2)
  1. CARBAMAZEPINE [Suspect]
     Indication: MANIA
     Dosage: 400 MG BID PO
     Route: 048
     Dates: start: 20120413, end: 20120419
  2. CARBAMAZEPINE [Suspect]
     Indication: BIPOLAR DISORDER
     Dosage: 400 MG BID PO
     Route: 048
     Dates: start: 20120413, end: 20120419

REACTIONS (4)
  - RASH ERYTHEMATOUS [None]
  - THROMBOCYTOPENIA [None]
  - WHITE BLOOD CELL COUNT DECREASED [None]
  - PRURITUS [None]
